FAERS Safety Report 20033424 (Version 1)
Quarter: 2021Q4

REPORT INFORMATION
  Report Type: Spontaneous
  Country: CA (occurrence: CA)
  Receive Date: 20211104
  Receipt Date: 20211104
  Transmission Date: 20220303
  Serious: Yes (Hospitalization, Other)
  Sender: FDA-Public Use
  Company Number: CA-NEBO-PC007595

PATIENT
  Age: 23 Year
  Sex: Female

DRUGS (1)
  1. MONOFERRIC [Suspect]
     Active Substance: FERRIC DERISOMALTOSE
     Indication: Iron deficiency anaemia
     Route: 042

REACTIONS (4)
  - Cyanosis [Unknown]
  - Oxygen saturation decreased [Unknown]
  - Rash [Unknown]
  - Emotional distress [Unknown]
